FAERS Safety Report 11339968 (Version 1)
Quarter: 2015Q3

REPORT INFORMATION
  Report Type: Spontaneous
  Country: US (occurrence: None)
  Receive Date: 20150803
  Receipt Date: 20150803
  Transmission Date: 20151125
  Serious: Yes (Hospitalization)
  Sender: FDA-Public Use
  Company Number: None

PATIENT
  Age: 66 Year
  Sex: Female
  Weight: 83.9 kg

DRUGS (1)
  1. CLOZAPINE. [Suspect]
     Active Substance: CLOZAPINE
     Indication: SCHIZOPHRENIA
     Dosage: 400 MG/4 TABS?QHS/BEDTIME?ORAL
     Route: 048
     Dates: start: 20150401, end: 20150730

REACTIONS (3)
  - Dyspnoea [None]
  - Neutropenia [None]
  - Sepsis [None]

NARRATIVE: CASE EVENT DATE: 20150730
